FAERS Safety Report 7327953-6 (Version None)
Quarter: 2011Q1

REPORT INFORMATION
  Report Type: 
  Country: None (occurrence: None)
  Receive Date: 20110223
  Receipt Date: 20110120
  Transmission Date: 20110831
  Serious: Yes (Death)
  Sender: FDA-Public Use
  Company Number: AE11-012-4

PATIENT
  Sex: Male

DRUGS (4)
  1. CARISOPRODOL [Suspect]
  2. ACETAMINOPHEN AND HYDROCODONE BITARTRATE [Suspect]
  3. ACETAMINOPHEN /OXYCODONE [Suspect]
  4. MEPROBAMATE [Suspect]

REACTIONS (2)
  - MULTIPLE DRUG OVERDOSE INTENTIONAL [None]
  - CARDIO-RESPIRATORY ARREST [None]
